FAERS Safety Report 22159890 (Version 2)
Quarter: 2023Q2

REPORT INFORMATION
  Report Type: Spontaneous
  Country: US (occurrence: US)
  Receive Date: 20230331
  Receipt Date: 20230426
  Transmission Date: 20230721
  Serious: Yes (Death, Hospitalization, Other)
  Sender: FDA-Public Use
  Company Number: US-GLAXOSMITHKLINE-US2023045937

PATIENT

DRUGS (1)
  1. TRELEGY ELLIPTA [Suspect]
     Active Substance: FLUTICASONE FUROATE\UMECLIDINIUM BROMIDE\VILANTEROL TRIFENATATE
     Indication: Chronic obstructive pulmonary disease
     Dosage: 1 PUFF(S), QD PO
     Route: 048
     Dates: start: 20211006

REACTIONS (10)
  - Pneumonia [Fatal]
  - Pulmonary cavitation [Unknown]
  - Bacterial infection [Unknown]
  - Aspergillus infection [Unknown]
  - Pseudomonas infection [Unknown]
  - Mycobacterium avium complex infection [Unknown]
  - Hepatitis acute [Unknown]
  - Resuscitation [Unknown]
  - Palliative care [Unknown]
  - Hospice care [Unknown]
